FAERS Safety Report 20331753 (Version 1)
Quarter: 2022Q1

REPORT INFORMATION
  Report Type: Spontaneous
  Country: US (occurrence: None)
  Receive Date: 20220112
  Receipt Date: 20220112
  Transmission Date: 20220423
  Serious: Yes (Hospitalization)
  Sender: FDA-Public Use
  Company Number: None

PATIENT
  Age: 41 Year
  Sex: Female

DRUGS (1)
  1. AMBRISENTAN [Suspect]
     Active Substance: AMBRISENTAN
     Indication: Pulmonary arterial hypertension
     Dosage: 10MG   QD ORAL
     Route: 048
     Dates: start: 20111202

REACTIONS (3)
  - Acute respiratory failure [None]
  - Hypervolaemia [None]
  - Anaemia [None]

NARRATIVE: CASE EVENT DATE: 20211217
